FAERS Safety Report 8212040-5 (Version None)
Quarter: 2012Q1

REPORT INFORMATION
  Report Type: 
  Country: None (occurrence: None)
  Receive Date: 20120315
  Receipt Date: 20120305
  Transmission Date: 20120608
  Serious: Yes (Hospitalization, Other)
  Sender: FDA-Public Use
  Company Number: PT-JNJFOC-20120302810

PATIENT
  Age: 66 Year
  Sex: Male

DRUGS (6)
  1. VALPROATE SODIUM [Concomitant]
     Indication: POST-TRAUMATIC STRESS DISORDER
     Route: 065
     Dates: start: 20100101, end: 20110401
  2. FLUVOXAMINE MALEATE [Concomitant]
     Indication: POST-TRAUMATIC STRESS DISORDER
     Route: 065
     Dates: start: 20100101, end: 20110401
  3. DIAZEPAM [Concomitant]
     Indication: POST-TRAUMATIC STRESS DISORDER
     Route: 065
     Dates: start: 20100101, end: 20110401
  4. RISPERIDONE [Suspect]
     Route: 030
     Dates: start: 20100101, end: 20110401
  5. RISPERIDONE [Suspect]
     Indication: POST-TRAUMATIC STRESS DISORDER
     Route: 030
     Dates: start: 20110101
  6. VALPROATE SODIUM [Concomitant]
     Route: 065
     Dates: start: 20110101

REACTIONS (4)
  - SUICIDE ATTEMPT [None]
  - SUICIDAL IDEATION [None]
  - ENURESIS [None]
  - TREATMENT NONCOMPLIANCE [None]
